FAERS Safety Report 6145551-7 (Version None)
Quarter: 2009Q2

REPORT INFORMATION
  Report Type: 
  Country: None (occurrence: None)
  Receive Date: 20090402
  Receipt Date: 20090326
  Transmission Date: 20091009
  Serious: Yes (Life-Threatening, Hospitalization)
  Sender: FDA-Public Use
  Company Number: 2009AL001836

PATIENT
  Age: 76 Year
  Sex: Female

DRUGS (8)
  1. NAPROXEN [Suspect]
     Indication: ARTHRITIS
     Dosage: 500 MG; BID; PO
     Route: 048
     Dates: start: 20080211, end: 20090302
  2. PARACETAMOL [Concomitant]
  3. PRIADEL [Concomitant]
  4. TEMAZEPAM [Concomitant]
  5. CHLORPROMAZINE [Concomitant]
  6. CITALOPRAM HYDROBROMIDE [Concomitant]
  7. FERROUS SULFATE TAB [Concomitant]
  8. LEVOTHYROXINE SODIUM [Concomitant]

REACTIONS (1)
  - GASTRIC ULCER PERFORATION [None]
